FAERS Safety Report 13768073 (Version 4)
Quarter: 2017Q3

REPORT INFORMATION
  Report Type: Spontaneous
  Country: AR (occurrence: AR)
  Receive Date: 20170719
  Receipt Date: 20170822
  Transmission Date: 20171127
  Serious: Yes (Death, Other)
  Sender: FDA-Public Use
  Company Number: AR-TEVA-787252ISR

PATIENT
  Age: 58 Year
  Sex: Female

DRUGS (5)
  1. ETANERCEPT [Concomitant]
     Active Substance: ETANERCEPT
     Indication: PSORIASIS
     Route: 058
     Dates: start: 201509
  2. ACITRETIN. [Suspect]
     Active Substance: ACITRETIN
     Indication: PSORIASIS
     Dosage: 50 MILLIGRAM DAILY;
     Dates: start: 201407, end: 201504
  3. ISONIAZID. [Concomitant]
     Active Substance: ISONIAZID
  4. IXEKIZUMAB [Concomitant]
     Active Substance: IXEKIZUMAB
     Dates: start: 201511, end: 201611
  5. COSENTYX [Suspect]
     Active Substance: SECUKINUMAB
     Indication: PSORIASIS
     Dates: start: 20170419

REACTIONS (10)
  - Influenza [Recovering/Resolving]
  - Pneumonia [Fatal]
  - Therapy partial responder [Recovering/Resolving]
  - Pyrexia [Recovering/Resolving]
  - Tuberculosis [Unknown]
  - Cardio-respiratory arrest [Fatal]
  - Pulmonary fibrosis [Fatal]
  - Drug intolerance [Recovering/Resolving]
  - Treatment failure [Not Recovered/Not Resolved]
  - Skin disorder [Recovering/Resolving]

NARRATIVE: CASE EVENT DATE: 20141017
